FAERS Safety Report 6146874-8 (Version None)
Quarter: 2009Q2

REPORT INFORMATION
  Report Type: 
  Country: None (occurrence: None)
  Receive Date: 20090407
  Receipt Date: 20090331
  Transmission Date: 20091009
  Serious: Yes (Life-Threatening, Hospitalization)
  Sender: FDA-Public Use
  Company Number: AT-AMGEN-US338382

PATIENT
  Age: 57 Year
  Sex: Female
  Weight: 56 kg

DRUGS (5)
  1. ENBREL [Suspect]
     Indication: POLYARTHRITIS
     Dates: start: 20060301, end: 20080701
  2. VOLTAREN [Concomitant]
     Indication: POLYARTHRITIS
     Dosage: 100MG ONE TIME PER DAY AS NEEDED
  3. SEROQUEL [Concomitant]
     Indication: INSOMNIA
     Dosage: ONE TABLET PER DAY
     Dates: end: 20090201
  4. RESOCHIN [Concomitant]
     Indication: POLYARTHRITIS
     Dosage: ONE TABLET PER DAY
     Dates: start: 20060201, end: 20081201
  5. PANTOPRAZOLE SODIUM [Concomitant]
     Indication: GASTRITIS

REACTIONS (3)
  - ILEUS [None]
  - MECHANICAL VENTILATION [None]
  - PNEUMONIA [None]
